FAERS Safety Report 8033185-9 (Version None)
Quarter: 2012Q1

REPORT INFORMATION
  Report Type: 
  Country: None (occurrence: None)
  Receive Date: 20120110
  Receipt Date: 20120105
  Transmission Date: 20120608
  Serious: Yes (Other)
  Sender: FDA-Public Use
  Company Number: US-PFIZER INC-2010073167

PATIENT
  Sex: Male
  Weight: 92.971 kg

DRUGS (9)
  1. DILANTIN [Suspect]
     Indication: EPILEPSY
     Dosage: 300 MG, DAILY
     Route: 048
     Dates: start: 19500101
  2. KEPPRA [Suspect]
     Indication: CONVULSION
     Dosage: 1000MG IN AM, 1500MG IN PM
     Route: 048
  3. MULTI-VITAMINS [Concomitant]
     Dosage: UNK
  4. LORAZEPAM [Concomitant]
     Indication: GRAND MAL CONVULSION
     Dosage: UNK
     Route: 048
  5. LAMICTAL [Suspect]
     Indication: CONVULSION
     Dosage: UNK
     Route: 048
  6. CALCIUM [Concomitant]
     Dosage: UNK
  7. CLONAZEPAM [Concomitant]
     Indication: CONVULSION
     Dosage: 4 MG, DAILY
     Route: 048
  8. DEPAKOTE [Suspect]
     Indication: CONVULSION
     Dosage: UNK
     Route: 048
  9. VITAMIN D [Concomitant]
     Dosage: UNK

REACTIONS (23)
  - CATARACT [None]
  - URTICARIA [None]
  - HEARING IMPAIRED [None]
  - BRAIN INJURY [None]
  - RHINORRHOEA [None]
  - BLOOD CHOLESTEROL INCREASED [None]
  - HYPERTENSION [None]
  - GINGIVAL SWELLING [None]
  - OESOPHAGEAL IRRITATION [None]
  - STRABISMUS [None]
  - SEDATION [None]
  - TOOTH DISORDER [None]
  - WEIGHT INCREASED [None]
  - DIZZINESS [None]
  - GRAND MAL CONVULSION [None]
  - GLAUCOMA [None]
  - OVERWEIGHT [None]
  - KERATOCONUS [None]
  - DIABETES MELLITUS [None]
  - ABDOMINAL DISTENSION [None]
  - GASTROOESOPHAGEAL REFLUX DISEASE [None]
  - HEADACHE [None]
  - EYE DISORDER [None]
